FAERS Safety Report 10364685 (Version 2)
Quarter: 2014Q3

REPORT INFORMATION
  Report Type: Spontaneous
  Country: US (occurrence: US)
  Receive Date: 20140806
  Receipt Date: 20140820
  Transmission Date: 20150326
  Serious: No
  Sender: FDA-Public Use
  Company Number: US-BAYER-2014-117358

PATIENT
  Age: 70 Year
  Sex: Female
  Weight: 88 kg

DRUGS (8)
  1. ALEVE [Suspect]
     Active Substance: NAPROXEN SODIUM
     Indication: ARTHRITIS
     Dosage: 1 DF, PRN
     Route: 048
  2. POTASSIUM [Concomitant]
     Active Substance: POTASSIUM
  3. FISH OIL [Concomitant]
     Active Substance: FISH OIL
     Dosage: UNK
  4. FISH OIL [Concomitant]
     Active Substance: FISH OIL
     Dosage: UNK
  5. DIURETICS [Concomitant]
     Active Substance: UNSPECIFIED INGREDIENT
     Dosage: UNK
  6. VITAMIN D [Concomitant]
     Active Substance: CHOLECALCIFEROL
  7. DIURETICS [Concomitant]
     Active Substance: UNSPECIFIED INGREDIENT
     Dosage: UNK
  8. ALEVE [Suspect]
     Active Substance: NAPROXEN SODIUM
     Indication: ARTHRITIS
     Dosage: 1 DF, PRN
     Route: 048

REACTIONS (3)
  - Drug ineffective [None]
  - Dyspepsia [None]
  - Inappropriate schedule of drug administration [None]
